FAERS Safety Report 8765506 (Version 1)
Quarter: 2012Q4

REPORT INFORMATION
  Report Type: 
  Country: US (occurrence: US)
  Receive Date: 20120903
  Receipt Date: 20120903
  Transmission Date: 20130627
  Serious: Yes (Other)
  Sender: FDA-Public Use
  Company Number: US-PFIZER INC-2012215225

PATIENT
  Age: 52 Year
  Sex: Female
  Weight: 90.7 kg

DRUGS (14)
  1. CELEBREX [Suspect]
     Indication: ARTHRITIS
     Dosage: 200 mg, 1x/day
     Route: 048
  2. FOLIC ACID [Concomitant]
     Dosage: 1 mg, 1x/day
  3. POTASSIUM CHLORIDE [Concomitant]
     Dosage: 10 mEq, 1x/day
  4. IRON [Concomitant]
     Dosage: 325 mg, 1x/day
  5. FEXOFENADINE [Concomitant]
     Dosage: 180 mg, 1x/day
  6. OMEPRAZOLE [Concomitant]
     Dosage: 40 mg, 1x/day
  7. XANAX [Concomitant]
     Dosage: 1 mg, 1x/day
  8. LEVOTHYROXINE [Concomitant]
     Dosage: 125 ug, 1x/day
  9. SINGULAIR [Concomitant]
     Dosage: 10 mg, 1x/day
  10. ALBUTEROL [Concomitant]
     Dosage: 2 puffs, as needed
  11. HYDROCHLOROTHIAZIDE [Concomitant]
     Dosage: 12.5 mg, 1x/day
  12. FLOVENT [Concomitant]
     Dosage: 110 mcg 2 puffs, 2x/day
  13. DOCUSATE [Concomitant]
     Dosage: 100 mg, 2x/day
  14. FERROUS SULPHATE [Concomitant]
     Dosage: 325 mg, 2x/day

REACTIONS (1)
  - Diabetes mellitus [Not Recovered/Not Resolved]
